FAERS Safety Report 7533853-9 (Version None)
Quarter: 2011Q2

REPORT INFORMATION
  Report Type: 
  Country: None (occurrence: None)
  Receive Date: 20110608
  Receipt Date: 20060505
  Transmission Date: 20111010
  Serious: Yes (Hospitalization)
  Sender: FDA-Public Use
  Company Number: PHFR2006GB01382

PATIENT
  Sex: Female

DRUGS (1)
  1. CLOZAPINE [Suspect]
     Indication: SCHIZOPHRENIA
     Route: 048
     Dates: start: 20030707

REACTIONS (6)
  - NECK INJURY [None]
  - LOWER RESPIRATORY TRACT INFECTION [None]
  - ROAD TRAFFIC ACCIDENT [None]
  - HEAD INJURY [None]
  - LOWER LIMB FRACTURE [None]
  - LOSS OF CONSCIOUSNESS [None]
